FAERS Safety Report 11119594 (Version 1)
Quarter: 2015Q2

REPORT INFORMATION
  Report Type: Spontaneous
  Country: US (occurrence: None)
  Receive Date: 20150515
  Receipt Date: 20150515
  Transmission Date: 20150821
  Serious: No
  Sender: FDA-Public Use
  Company Number: None

PATIENT
  Age: 51 Year
  Sex: Female
  Weight: 90.72 kg

DRUGS (4)
  1. ALLEGRA [Concomitant]
     Active Substance: FEXOFENADINE HYDROCHLORIDE
  2. BABY ASPIRIN??? [Concomitant]
  3. VIT. D WITH CALCIUM [Concomitant]
  4. ZETONNA [Suspect]
     Active Substance: CICLESONIDE
     Indication: RHINITIS ALLERGIC
     Dosage: 37 MCG PER ACTUATION , 1 SPRAY, 1X DAY, NASAL SPRAY
     Route: 045
     Dates: start: 20150123, end: 20150124

REACTIONS (5)
  - Headache [None]
  - Reaction to drug excipients [None]
  - Sneezing [None]
  - Burning sensation [None]
  - Product formulation issue [None]

NARRATIVE: CASE EVENT DATE: 20150123
